FAERS Safety Report 26063143 (Version 1)
Quarter: 2025Q4

REPORT INFORMATION
  Report Type: Report from Study
  Country: US (occurrence: US)
  Receive Date: 20251119
  Receipt Date: 20251119
  Transmission Date: 20260118
  Serious: Yes (Other)
  Sender: ACADIA PHARMACEUTICALS
  Company Number: US-ACADIA PHARMACEUTICALS INC.-ACA-2025-PIM-012225

PATIENT
  Age: 84 Year
  Sex: Male

DRUGS (11)
  1. NUPLAZID [Suspect]
     Active Substance: PIMAVANSERIN TARTRATE
     Indication: Parkinson^s disease
     Dosage: 34 MILLIGRAM, QD
     Route: 048
     Dates: start: 20250828, end: 20251110
  2. ADVIL [Concomitant]
     Active Substance: IBUPROFEN
  3. DUTASTERIDE [Concomitant]
     Active Substance: DUTASTERIDE
  4. MELATONIN [Concomitant]
     Active Substance: MELATONIN
  5. MYRBETRIQ [Concomitant]
     Active Substance: MIRABEGRON
  6. PRAVASTATIN [Concomitant]
     Active Substance: PRAVASTATIN
  7. QUETIAPINE [Concomitant]
     Active Substance: QUETIAPINE
  8. RYTARY [Concomitant]
     Active Substance: CARBIDOPA\LEVODOPA
     Dosage: ER
  9. RYTARY [Concomitant]
     Active Substance: CARBIDOPA\LEVODOPA
  10. VYZULTA [Concomitant]
     Active Substance: LATANOPROSTENE BUNOD
  11. OPHTH [Concomitant]

REACTIONS (3)
  - Balance disorder [Recovered/Resolved]
  - Hip fracture [Recovered/Resolved]
  - Confusional state [Recovered/Resolved]

NARRATIVE: CASE EVENT DATE: 20250828
